FAERS Safety Report 7245263-2 (Version None)
Quarter: 2011Q1

REPORT INFORMATION
  Report Type: 
  Country: None (occurrence: None)
  Receive Date: 20110126
  Receipt Date: 20110120
  Transmission Date: 20110831
  Serious: Yes (Hospitalization)
  Sender: FDA-Public Use
  Company Number: IE-MEDIMMUNE-MEDI-0012307

PATIENT
  Sex: Male

DRUGS (3)
  1. SYNAGIS [Suspect]
     Indication: HEART DISEASE CONGENITAL
     Route: 030
     Dates: start: 20101111, end: 20101111
  2. SPIRONOLACTONE [Concomitant]
  3. FUROSEMIDE [Concomitant]

REACTIONS (1)
  - BRONCHITIS [None]
